FAERS Safety Report 8927623 (Version 1)
Quarter: 2012Q4

REPORT INFORMATION
  Report Type: 
  Country: EC (occurrence: EC)
  Receive Date: 20121127
  Receipt Date: 20121127
  Transmission Date: 20130627
  Serious: Yes (Death, Hospitalization, Other)
  Sender: FDA-Public Use
  Company Number: PHHY2012EC106707

PATIENT
  Age: 89 Year
  Sex: Female

DRUGS (5)
  1. RASILEZ HCT [Suspect]
     Indication: HYPERTENSION
     Dosage: 1 DF (150 mg alis and 12.5 mg hct), QD
     Route: 048
     Dates: start: 20101101, end: 20120925
  2. HYZAAR PLUS [Concomitant]
     Indication: HYPERTENSION
     Dosage: 1 DF(25/100mg), QD
     Route: 048
  3. CONCOR [Concomitant]
     Indication: HYPERTENSION
     Dosage: 10 mg, QD
     Route: 048
  4. SPIRIVA [Concomitant]
     Indication: CHRONIC OBSTRUCTIVE PULMONARY DISEASE
     Dosage: 60 mg, QD
  5. CARDIOASPIRIN [Concomitant]
     Dosage: 81 mg, QD
     Route: 048

REACTIONS (4)
  - Cardiac arrest [Fatal]
  - Cerebrovascular accident [Fatal]
  - Hemiplegia [Fatal]
  - Blood pressure systolic increased [Unknown]
